FAERS Safety Report 9275646 (Version 2)
Quarter: 2013Q2

REPORT INFORMATION
  Report Type: Spontaneous
  Country: DE (occurrence: None)
  Receive Date: 20130430
  Receipt Date: 20130506
  Transmission Date: 20140414
  Serious: Yes (Life-Threatening, Hospitalization)
  Sender: FDA-Public Use
  Company Number: AUR-APL-2013-03387

PATIENT
  Age: 79 Year
  Sex: Female

DRUGS (11)
  1. BISOPROLOL [Suspect]
     Indication: PRODUCT USED FOR UNKNOWN INDICATION
     Route: 048
  2. DIGOXIN (DIGOXIN) [Suspect]
     Indication: PRODUCT USED FOR UNKNOWN INDICATION
     Route: 048
     Dates: start: 20120914
  3. RISPERDAL [Suspect]
     Indication: PRODUCT USED FOR UNKNOWN INDICATION
     Route: 048
     Dates: start: 20120912, end: 20120914
  4. CYMBALTA (DULOXETINE HYDROCHLORIDE) [Suspect]
     Indication: DEPRESSION
     Route: 048
     Dates: start: 20120912, end: 20120914
  5. ALLOPURINOL [Concomitant]
  6. METFORMIN (METFORMIN) [Concomitant]
  7. PRAVASTATIN (PRAVASTATIN) [Concomitant]
  8. LISINOPRIL (LISINOPRIL) [Concomitant]
  9. TOREM (TORASEMIDE) [Concomitant]
  10. ASS (ACETYLSALICYLIC ACID) [Concomitant]
  11. ISDN (ISOSORBIDE DINITRATE) [Concomitant]

REACTIONS (1)
  - Atrioventricular block [None]
